FAERS Safety Report 16216079 (Version 1)
Quarter: 2019Q2

REPORT INFORMATION
  Report Type: Other
  Country: DE (occurrence: DE)
  Receive Date: 20190419
  Receipt Date: 20190419
  Transmission Date: 20190711
  Serious: Yes (Other)
  Sender: FDA-Public Use
  Company Number: DE-MACLEODS PHARMACEUTICALS US LTD-MAC2019020916

PATIENT

DRUGS (2)
  1. PANTOPRAZOLE [Suspect]
     Active Substance: PANTOPRAZOLE
     Indication: GASTRITIS
     Dosage: 40 MILLIGRAM, QD
     Route: 048
     Dates: start: 20190304, end: 20190308
  2. L-THYROXIN 100 [Concomitant]
     Active Substance: LEVOTHYROXINE SODIUM
     Indication: HYPOTHYROIDISM
     Dosage: 1 DOSAGE FORM, QD, TAKING FOR YEARS,DAILY DOSE: 1 DF DOSAGE FORM EVERY DAYS
     Route: 048

REACTIONS (5)
  - Stomatitis [Recovering/Resolving]
  - Vulvovaginitis [Recovering/Resolving]
  - Duodenitis [Recovering/Resolving]
  - Swollen tongue [Recovering/Resolving]
  - Taste disorder [Recovering/Resolving]

NARRATIVE: CASE EVENT DATE: 201903
